FAERS Safety Report 4276832-X (Version None)
Quarter: 2004Q1

REPORT INFORMATION
  Report Type: 
  Country: None (occurrence: None)
  Receive Date: 20040120
  Receipt Date: 20040108
  Transmission Date: 20041129
  Serious: Yes (Hospitalization)
  Sender: FDA-Public Use
  Company Number: S03-USA-04711-01

PATIENT
  Age: 19 Year
  Sex: Female

DRUGS (2)
  1. LEXAPRO [Suspect]
     Indication: DEPRESSION
     Dosage: 15 MG QD PO
     Route: 048
     Dates: start: 20031105, end: 20031107
  2. LEXAPRO [Suspect]
     Indication: DEPRESSION
     Dosage: 10 MG QD PO
     Route: 048
     Dates: start: 20031015, end: 20031104

REACTIONS (6)
  - AGGRESSION [None]
  - CRYING [None]
  - DELIRIUM [None]
  - INCOHERENT [None]
  - MENINGITIS VIRAL [None]
  - NAUSEA [None]
